FAERS Safety Report 9553464 (Version 2)
Quarter: 2013Q3

REPORT INFORMATION
  Report Type: Spontaneous
  Country: US (occurrence: US)
  Receive Date: 20130925
  Receipt Date: 20130925
  Transmission Date: 20140515
  Serious: Yes (Other)
  Sender: FDA-Public Use
  Company Number: US-FRI-1000045627

PATIENT
  Sex: Female
  Weight: 72.1 kg

DRUGS (9)
  1. VIIBRYD [Suspect]
     Indication: DEPRESSION
     Dosage: 40 MG
     Route: 048
     Dates: start: 20130419
  2. VIIBRYD [Suspect]
     Indication: ANXIETY
  3. ADDERALL [Concomitant]
     Indication: ATTENTION DEFICIT/HYPERACTIVITY DISORDER
     Dosage: 10 MG
     Route: 048
  4. SYNTHROID [Concomitant]
     Indication: HYPOTHYROIDISM
     Dosage: 125 MCG
  5. CLONAZEPAM [Concomitant]
     Indication: INITIAL INSOMNIA
     Dosage: 1 MG AT BEDTIME
     Route: 048
  6. ATORVASTATIN [Concomitant]
     Indication: BLOOD CHOLESTEROL INCREASED
     Dosage: DAILY
  7. FLUTICASONE [Concomitant]
     Dosage: 50 MCG 2 SPRAYS EACH NOSTRIL DAILY
  8. HYDROCHLOROTHIAZIDE [Concomitant]
     Dosage: 12.5 MG
     Route: 048
  9. HYDROCODONE/ACETAMINOPHEN [Concomitant]
     Dosage: 5/500 MG EVERY 6 HOURS AS NEEDED
     Route: 048

REACTIONS (14)
  - Suicidal ideation [Not Recovered/Not Resolved]
  - Trichorrhexis [Unknown]
  - Hair disorder [Unknown]
  - Abnormal dreams [Unknown]
  - Insomnia [Unknown]
  - Abdominal distension [Unknown]
  - Anxiety [Not Recovered/Not Resolved]
  - Impulsive behaviour [Not Recovered/Not Resolved]
  - Agitation [Not Recovered/Not Resolved]
  - Irritability [Not Recovered/Not Resolved]
  - Weight increased [Not Recovered/Not Resolved]
  - Headache [Not Recovered/Not Resolved]
  - Pruritus [Not Recovered/Not Resolved]
  - Temperature intolerance [Not Recovered/Not Resolved]
